FAERS Safety Report 18295265 (Version 1)
Quarter: 2020Q3

REPORT INFORMATION
  Report Type: Report from Study
  Country: None (occurrence: US)
  Receive Date: 20200922
  Receipt Date: 20200922
  Transmission Date: 20201103
  Serious: Yes (Hospitalization, Other)
  Sender: FDA-Public Use
  Company Number: US-ABBVIE-20K-163-3551910-00

PATIENT
  Age: 86 Year
  Sex: Male

DRUGS (1)
  1. IMBRUVICA [Suspect]
     Active Substance: IBRUTINIB
     Indication: WALDENSTROM^S MACROGLOBULINAEMIA
     Route: 048

REACTIONS (12)
  - Hypotension [Unknown]
  - Diverticulitis [Unknown]
  - Nightmare [Unknown]
  - Hallucination [Unknown]
  - Lethargy [Unknown]
  - Dysarthria [Unknown]
  - Skin cancer [Unknown]
  - Dehydration [Unknown]
  - Urinary tract infection [Unknown]
  - Loss of consciousness [Unknown]
  - Fall [Unknown]
  - Decreased activity [Unknown]

NARRATIVE: CASE EVENT DATE: 20200817
